FAERS Safety Report 16420277 (Version 4)
Quarter: 2019Q3

REPORT INFORMATION
  Report Type: Spontaneous
  Country: US (occurrence: US)
  Receive Date: 20190612
  Receipt Date: 20190924
  Transmission Date: 20191004
  Serious: No
  Sender: FDA-Public Use
  Company Number: US-PFIZER INC-2019252022

PATIENT
  Age: 58 Year
  Sex: Female

DRUGS (3)
  1. IBRANCE [Suspect]
     Active Substance: PALBOCICLIB
     Dosage: 125 MG, DAILY
     Dates: start: 20190604, end: 2019
  2. IBRANCE [Suspect]
     Active Substance: PALBOCICLIB
     Dosage: 125 MG, CYCLIC (FOR 21 DAYS THEN 7 DAYS OFF)
     Route: 048
     Dates: start: 20190706, end: 20190730
  3. IBRANCE [Suspect]
     Active Substance: PALBOCICLIB
     Indication: BREAST CANCER FEMALE
     Dosage: 125 MG, CYCLIC (TAKE 1 CAPSULE BY MOUTH DAILY FOR 21 DAYS, THEN 7 DAYS OFF )
     Route: 048
     Dates: start: 20190531, end: 2019

REACTIONS (10)
  - Insomnia [Unknown]
  - Chills [Unknown]
  - Nausea [Unknown]
  - White blood cell count decreased [Unknown]
  - Fatigue [Unknown]
  - Abdominal pain [Unknown]
  - Bone pain [Unknown]
  - Dizziness [Unknown]
  - Myalgia [Unknown]
  - Decreased appetite [Unknown]

NARRATIVE: CASE EVENT DATE: 2019
